FAERS Safety Report 12865837 (Version 5)
Quarter: 2021Q1

REPORT INFORMATION
  Report Type: Spontaneous
  Country: US (occurrence: US)
  Receive Date: 20161020
  Receipt Date: 20210209
  Transmission Date: 20210419
  Serious: No
  Sender: FDA-Public Use
  Company Number: US-PFIZER INC-2016021993

PATIENT
  Age: 5 Decade
  Sex: Female

DRUGS (9)
  1. LYRICA [Suspect]
     Active Substance: PREGABALIN
     Dosage: 600 MG, DAILY (100X6)
  2. TRAMADOL HCL [Concomitant]
     Active Substance: TRAMADOL HYDROCHLORIDE
     Dosage: 50 MG, 4X/DAY
  3. OXYCODONE [Concomitant]
     Active Substance: OXYCODONE
     Dosage: UNK (10?325 X5 )
  4. LYRICA [Suspect]
     Active Substance: PREGABALIN
     Indication: MYOTONIA
     Dosage: 200 MG, 3X/DAY
     Route: 048
     Dates: start: 2012
  5. AMITRIPTYLENE [Concomitant]
     Active Substance: AMITRIPTYLINE
     Dosage: 100 MG, 1X/DAY
  6. LYRICA [Suspect]
     Active Substance: PREGABALIN
     Dosage: 600 MG, DAILY (TAKE 1 CAPSULE (200 MG) EVERY MORNING AND 2 CAPSULES (400 MG) AT BEDTIME)
     Route: 048
  7. PHENYTOIN. [Concomitant]
     Active Substance: PHENYTOIN
     Dosage: 100 MG, UNK
  8. ZOLPIDEM [Concomitant]
     Active Substance: ZOLPIDEM TARTRATE
     Dosage: 6.25 MG, 1X/DAY
  9. ALPRAZOLAM. [Concomitant]
     Active Substance: ALPRAZOLAM
     Dosage: 50 MG, 1X/DAY

REACTIONS (2)
  - Off label use [Unknown]
  - Pain [Unknown]

NARRATIVE: CASE EVENT DATE: 2012
